FAERS Safety Report 11177546 (Version 4)
Quarter: 2015Q4

REPORT INFORMATION
  Report Type: Spontaneous
  Country: CA (occurrence: CA)
  Receive Date: 20150610
  Receipt Date: 20151104
  Transmission Date: 20160304
  Serious: Yes (Other)
  Sender: FDA-Public Use
  Company Number: CA-PFIZER INC-2015189191

PATIENT
  Age: 57 Year
  Sex: Female

DRUGS (9)
  1. NAPROSYN [Concomitant]
     Active Substance: NAPROXEN
     Indication: RHEUMATOID ARTHRITIS
     Dosage: 500 MG, 1X/DAY
     Dates: start: 201410
  2. METFORMIN [Concomitant]
     Active Substance: METFORMIN HYDROCHLORIDE
     Indication: DIABETES MELLITUS
     Dosage: 500 MG, 1X/DAY
  3. METHOTREXATE SODIUM. [Suspect]
     Active Substance: METHOTREXATE SODIUM
     Indication: RHEUMATOID ARTHRITIS
     Dosage: UNK
  4. PLAQUENIL [Suspect]
     Active Substance: HYDROXYCHLOROQUINE SULFATE
     Indication: RHEUMATOID ARTHRITIS
     Dosage: 400 MG, 1X/DAY
     Dates: start: 20140806
  5. RAMIPRIL. [Concomitant]
     Active Substance: RAMIPRIL
     Indication: HYPERTENSION
     Dosage: 5 MG, 1X/DAY
  6. SULFASALAZINE. [Suspect]
     Active Substance: SULFASALAZINE
     Dosage: 1 G, DAILY
  7. ARAVA [Suspect]
     Active Substance: LEFLUNOMIDE
     Indication: RHEUMATOID ARTHRITIS
     Dosage: UNK
  8. SULFASALAZINE. [Suspect]
     Active Substance: SULFASALAZINE
     Indication: RHEUMATOID ARTHRITIS
     Dosage: 1 G, 2X/DAY
     Route: 048
     Dates: start: 20140806, end: 20150602
  9. CLONAZEPAM. [Concomitant]
     Active Substance: CLONAZEPAM
     Dosage: 2 MG, AS NEEDED

REACTIONS (6)
  - Arthropathy [Unknown]
  - Mycobacterium tuberculosis complex test positive [Not Recovered/Not Resolved]
  - Treatment failure [Unknown]
  - Abdominal discomfort [Recovered/Resolved with Sequelae]
  - Vomiting [Recovered/Resolved with Sequelae]
  - Nausea [Recovered/Resolved with Sequelae]
